FAERS Safety Report 6788100-2 (Version None)
Quarter: 2010Q2

REPORT INFORMATION
  Report Type: 
  Country: None (occurrence: None)
  Receive Date: 20100623
  Receipt Date: 20080303
  Transmission Date: 20101027
  Serious: No
  Sender: FDA-Public Use
  Company Number: US-PFIZER INC-2007102224

PATIENT
  Sex: Female
  Weight: 60 kg

DRUGS (1)
  1. GEODON [Suspect]
     Indication: BIPOLAR DISORDER
     Route: 048
     Dates: start: 20070801, end: 20071130

REACTIONS (3)
  - BLOOD HUMAN CHORIONIC GONADOTROPIN INCREASED [None]
  - BLOOD PROLACTIN INCREASED [None]
  - BLOOD TRIGLYCERIDES INCREASED [None]
